FAERS Safety Report 22339760 (Version 1)
Quarter: 2023Q2

REPORT INFORMATION
  Report Type: Spontaneous
  Country: JP (occurrence: JP)
  Receive Date: 20230518
  Receipt Date: 20230518
  Transmission Date: 20230722
  Serious: Yes (Death, Hospitalization, Other)
  Sender: FDA-Public Use
  Company Number: JP-ABBVIE-4343493

PATIENT
  Age: 69 Year
  Sex: Female

DRUGS (5)
  1. VENCLEXTA [Suspect]
     Active Substance: VENETOCLAX
     Indication: Acute megakaryocytic leukaemia
     Dosage: 200 MILLIGRAM
     Route: 048
  2. VENCLEXTA [Suspect]
     Active Substance: VENETOCLAX
     Indication: Acute megakaryocytic leukaemia
     Dosage: 400 MILLIGRAM
     Route: 048
  3. VENCLEXTA [Suspect]
     Active Substance: VENETOCLAX
     Indication: Acute megakaryocytic leukaemia
     Dosage: 100 MILLIGRAM
     Route: 048
  4. AZACITIDINE [Concomitant]
     Active Substance: AZACITIDINE
     Indication: Acute megakaryocytic leukaemia
  5. MICAFUNGIN SODIUM [Concomitant]
     Active Substance: MICAFUNGIN SODIUM
     Indication: Pneumonia
     Dosage: 150 MILLIGRAM
     Route: 042

REACTIONS (2)
  - Febrile neutropenia [Fatal]
  - Myelosuppression [Unknown]

NARRATIVE: CASE EVENT DATE: 20220603
